FAERS Safety Report 7662148-8 (Version None)
Quarter: 2011Q3

REPORT INFORMATION
  Report Type: 
  Country: None (occurrence: None)
  Receive Date: 20110805
  Receipt Date: 20101217
  Transmission Date: 20111222
  Serious: No
  Sender: FDA-Public Use
  Company Number: US-ABBOTT-10P-163-0692742-00

PATIENT
  Sex: Female
  Weight: 54.48 kg

DRUGS (9)
  1. SUDAFED 12 HOUR [Concomitant]
     Indication: PRODUCT USED FOR UNKNOWN INDICATION
     Route: 048
  2. SYNTHROID [Concomitant]
     Indication: HYPOTHYROIDISM
     Route: 048
  3. VESICARE [Concomitant]
     Indication: URINARY INCONTINENCE
     Route: 048
  4. DYAZIDE [Concomitant]
     Indication: BLOOD PRESSURE
     Route: 048
  5. OMEPRAZOLE [Concomitant]
     Indication: GASTROOESOPHAGEAL REFLUX DISEASE
     Route: 048
  6. CALCIUM W/VITAMIN D [Concomitant]
     Indication: MINERAL SUPPLEMENTATION
     Route: 048
  7. MULTI-VITAMIN [Concomitant]
     Indication: VITAMIN SUPPLEMENTATION
     Route: 048
  8. PROVIGIL [Concomitant]
     Indication: MENIERE'S DISEASE
     Route: 048
  9. NIASPAN [Suspect]
     Indication: BLOOD CHOLESTEROL INCREASED
     Route: 048
     Dates: start: 20101211, end: 20101212

REACTIONS (7)
  - FLUSHING [None]
  - URTICARIA [None]
  - OESOPHAGEAL SPASM [None]
  - NAUSEA [None]
  - OEDEMA PERIPHERAL [None]
  - DYSPEPSIA [None]
  - VOMITING [None]
